FAERS Safety Report 5196932-X (Version None)
Quarter: 2007Q1

REPORT INFORMATION
  Report Type: 
  Country: None (occurrence: None)
  Receive Date: 20070103
  Receipt Date: 20061222
  Transmission Date: 20070707
  Serious: Yes (Death)
  Sender: FDA-Public Use
  Company Number: JP-ROCHE-476443

PATIENT
  Age: 14 Year
  Sex: Female

DRUGS (1)
  1. ROCEPHIN [Suspect]
     Indication: DRUG USE FOR UNKNOWN INDICATION
     Dosage: REPORTED AS 1G BAG
     Route: 041
     Dates: start: 20051115, end: 20051115

REACTIONS (1)
  - SHOCK [None]
